FAERS Safety Report 9571526 (Version 1)
Quarter: 2013Q3

REPORT INFORMATION
  Report Type: Spontaneous
  Country: US (occurrence: None)
  Receive Date: 20130930
  Receipt Date: 20130930
  Transmission Date: 20140515
  Serious: Yes (Death)
  Sender: FDA-Public Use
  Company Number: None

PATIENT
  Age: 4 Month
  Sex: Male
  Weight: 94.8 kg

DRUGS (2)
  1. LEVOFLOXACIN [Suspect]
     Indication: PNEUMONIA
     Route: 042
     Dates: start: 20130916, end: 20130919
  2. QUETIAPINE [Suspect]
     Indication: DEPRESSION
     Route: 047
     Dates: start: 20121115, end: 20130921

REACTIONS (1)
  - Sudden cardiac death [None]
